FAERS Safety Report 20308897 (Version 1)
Quarter: 2022Q1

REPORT INFORMATION
  Report Type: Spontaneous
  Country: US (occurrence: None)
  Receive Date: 20220106
  Receipt Date: 20220106
  Transmission Date: 20220423
  Serious: Yes (Death)
  Sender: FDA-Public Use
  Company Number: None

PATIENT
  Age: 79 Year
  Sex: Female

DRUGS (8)
  1. TAGRISSO [Suspect]
     Active Substance: OSIMERTINIB
     Dosage: FREQUENCY : DAILY;?
     Route: 048
     Dates: start: 20200213
  2. ABILIFY 10MG TABLETS ALBUTEROL 0.083%(2.5MG/3ML) 25X3ML AMITIZA 24MCG [Concomitant]
  3. ATORVASTATIN 20MG TABLETS CLONAZEPAM 1MG TABLETS DILTIAZEM CD 120MG CA [Concomitant]
  4. HYDROXYZINE HCL 50MG TABS (WHITE) JANUVIA 100MG TABLETS LOSARTAN 100MG [Concomitant]
  5. MECLIZINE 25MG RX TABLETS METFORMIN 500MG TABLETS NAMENDA 10MG TABLETS [Concomitant]
  6. ONDANSETRON ODT 8MG TABLETS POTASSIUM CL 10MEQ ER CAPSULES SINGULAIR 1 [Concomitant]
  7. SYMBICORT 160/4.5MCG (120 ORAL INH) VITAMIN B-12 1000MCG TABLETS VITAM [Concomitant]
  8. VITAMIN B-12 1000MCG TABLETS VITAMIN C 1000MG TABLETS OMEPRAZOLE 20MG [Concomitant]

REACTIONS (1)
  - Death [None]
